FAERS Safety Report 4881034-X (Version None)
Quarter: 2005Q4

REPORT INFORMATION
  Report Type: 
  Country: None (occurrence: None)
  Receive Date: 20051223
  Receipt Date: 20051024
  Transmission Date: 20060501
  Serious: No
  Sender: FDA-Public Use
  Company Number: 05P-163-0315012-00

PATIENT
  Age: 72 Year
  Sex: Female
  Weight: 83.0083 kg

DRUGS (12)
  1. HUMIRA [Suspect]
     Indication: RHEUMATOID ARTHRITIS
     Dosage: 40 MG, 1 IN 2 WK, SUBCUTANEOUS
     Route: 058
     Dates: start: 20051007
  2. CYCLOSPORINE [Concomitant]
  3. PREDNISONE [Concomitant]
  4. CALCIUM GLUCONATE [Concomitant]
  5. CENTRUM [Concomitant]
  6. GLIPIZIDE [Concomitant]
  7. METFORMIN HYDROCHLORIDE [Concomitant]
  8. LEVOTHYROXINE SODIUM [Concomitant]
  9. ASPIRIN [Concomitant]
  10. OMEPRAZOLE [Concomitant]
  11. DARVOCET [Concomitant]
  12. VICODIN [Concomitant]

REACTIONS (1)
  - ASTHENIA [None]
